FAERS Safety Report 5187877-X (Version None)
Quarter: 2006Q4

REPORT INFORMATION
  Report Type: 
  Country: None (occurrence: None)
  Receive Date: 20061221
  Receipt Date: 20061110
  Transmission Date: 20070319
  Serious: No
  Sender: FDA-Public Use
  Company Number: US-GLAXOSMITHKLINE-A0627035A

PATIENT
  Age: 59 Year
  Sex: Female

DRUGS (5)
  1. AVANDARYL [Suspect]
     Dosage: 1TAB PER DAY
     Route: 048
     Dates: start: 20061101
  2. FLU SHOT [Concomitant]
  3. TENEX [Concomitant]
  4. BENICAR [Concomitant]
  5. DURAGESIC-100 [Concomitant]

REACTIONS (1)
  - BLOOD GLUCOSE INCREASED [None]
